FAERS Safety Report 25434267 (Version 1)
Quarter: 2025Q2

REPORT INFORMATION
  Report Type: Spontaneous
  Country: DE (occurrence: DE)
  Receive Date: 20250613
  Receipt Date: 20250613
  Transmission Date: 20250716
  Serious: Yes (Other)
  Sender: UCB
  Company Number: DE-UCBSA-2025033762

PATIENT
  Age: 26 Year
  Sex: Female

DRUGS (2)
  1. BRIVARACETAM [Suspect]
     Active Substance: BRIVARACETAM
     Indication: Epilepsy
  2. LACOSAMIDE [Suspect]
     Active Substance: LACOSAMIDE
     Indication: Temporal lobe epilepsy

REACTIONS (7)
  - Seizure [Unknown]
  - Altered state of consciousness [Unknown]
  - Tardive dyskinesia [Unknown]
  - Nausea [Unknown]
  - Taste disorder [Unknown]
  - Restlessness [Unknown]
  - Urinary incontinence [Unknown]
